FAERS Safety Report 12697102 (Version 1)
Quarter: 2016Q3

REPORT INFORMATION
  Report Type: Spontaneous
  Country: US (occurrence: None)
  Receive Date: 20160829
  Receipt Date: 20160829
  Transmission Date: 20161109
  Serious: Yes (Hospitalization, Disabling, Other)
  Sender: FDA-Public Use
  Company Number: None

PATIENT
  Age: 67 Year
  Sex: Male
  Weight: 72.58 kg

DRUGS (2)
  1. LEVAQUIN [Suspect]
     Active Substance: LEVOFLOXACIN
     Indication: PYREXIA
     Dosage: 2 BAGS  2 BAGS INTO A VEIN
     Route: 042
     Dates: start: 20160613, end: 20160614
  2. LEVAQUIN [Suspect]
     Active Substance: LEVOFLOXACIN
     Indication: INFECTION
     Dosage: 2 BAGS  2 BAGS INTO A VEIN
     Route: 042
     Dates: start: 20160613, end: 20160614

REACTIONS (10)
  - Neuropathy peripheral [None]
  - Rash erythematous [None]
  - Oropharyngeal pain [None]
  - Fatigue [None]
  - Renal disorder [None]
  - Skin exfoliation [None]
  - Confusional state [None]
  - Headache [None]
  - Myalgia [None]
  - Increased tendency to bruise [None]

NARRATIVE: CASE EVENT DATE: 20160613
